FAERS Safety Report 18186580 (Version 6)
Quarter: 2021Q2

REPORT INFORMATION
  Report Type: Other
  Country: ES (occurrence: ES)
  Receive Date: 20200824
  Receipt Date: 20210611
  Transmission Date: 20210717
  Serious: Yes (Other)
  Sender: FDA-Public Use
  Company Number: ES-ROCHE-2424780

PATIENT

DRUGS (4)
  1. NERATINIB [Suspect]
     Active Substance: NERATINIB
     Indication: BREAST CANCER METASTATIC
     Route: 048
  2. CAPECITABINE. [Suspect]
     Active Substance: CAPECITABINE
     Indication: BREAST CANCER METASTATIC
     Route: 048
  3. LAPATINIB [Suspect]
     Active Substance: LAPATINIB
     Indication: BREAST CANCER METASTATIC
     Route: 048
  4. CAPECITABINE. [Suspect]
     Active Substance: CAPECITABINE
     Route: 048

REACTIONS (32)
  - Abdominal pain [Unknown]
  - Asthenia [Unknown]
  - Ejection fraction decreased [Unknown]
  - Decreased appetite [Unknown]
  - Weight decreased [Unknown]
  - Intracranial tumour haemorrhage [Unknown]
  - Fatigue [Unknown]
  - Pyrexia [Unknown]
  - Myocardial ischaemia [Unknown]
  - Seizure [Unknown]
  - Disorientation [Unknown]
  - Hepatitis fulminant [Unknown]
  - Palmar-plantar erythrodysaesthesia syndrome [Unknown]
  - Vomiting [Unknown]
  - Arrhythmia [Unknown]
  - Intracranial pressure increased [Unknown]
  - Metastases to central nervous system [Unknown]
  - Paraparesis [Unknown]
  - Delirium [Unknown]
  - Mental status changes [Unknown]
  - Anaemia [Unknown]
  - Hypokalaemia [Unknown]
  - Paronychia [Unknown]
  - Hemiparesis [Unknown]
  - Diarrhoea [Unknown]
  - Rash [Unknown]
  - Dizziness [Unknown]
  - Electrocardiogram QT prolonged [Unknown]
  - Nausea [Unknown]
  - Constipation [Unknown]
  - Stomatitis [Unknown]
  - Headache [Unknown]
